FAERS Safety Report 5128032-9 (Version None)
Quarter: 2006Q4

REPORT INFORMATION
  Report Type: 
  Country: None (occurrence: None)
  Receive Date: 20061013
  Receipt Date: 20061013
  Transmission Date: 20070319
  Serious: Yes (Life-Threatening, Hospitalization)
  Sender: FDA-Public Use
  Company Number: None

PATIENT
  Sex: Female

DRUGS (3)
  1. AVELOX [Suspect]
     Indication: SINUSITIS
     Dosage: 400MG DAILY PO
     Route: 048
     Dates: start: 20060928
  2. AVELOX [Suspect]
     Indication: SINUSITIS
     Dosage: 400MG DAILY PO
     Route: 048
     Dates: start: 20060929
  3. AVELOX [Suspect]
     Indication: SINUSITIS
     Dosage: 400MG DAILY PO
     Route: 048
     Dates: start: 20061012

REACTIONS (12)
  - BURNING SENSATION [None]
  - CONDITION AGGRAVATED [None]
  - DEPRESSED LEVEL OF CONSCIOUSNESS [None]
  - ERYTHEMA [None]
  - PHARYNGOLARYNGEAL PAIN [None]
  - PRURITUS [None]
  - RESPIRATORY DISTRESS [None]
  - RESUSCITATION [None]
  - SINUS DISORDER [None]
  - SWELLING [None]
  - THERAPY CESSATION [None]
  - THROAT TIGHTNESS [None]
